FAERS Safety Report 4389008-2 (Version None)
Quarter: 2004Q3

REPORT INFORMATION
  Report Type: 
  Country: None (occurrence: None)
  Receive Date: 20040701
  Receipt Date: 20040701
  Transmission Date: 20050211
  Serious: Yes (Hospitalization)
  Sender: FDA-Public Use
  Company Number: None

PATIENT
  Sex: Male
  Weight: 80 kg

DRUGS (3)
  1. AMPHOTERICIN B [Suspect]
     Indication: NEUTROPENIA
     Dosage: 20 MG
     Dates: start: 20030317
  2. VANCOMYCIN [Concomitant]
  3. ACYCLOVIR [Concomitant]

REACTIONS (1)
  - RENAL FAILURE ACUTE [None]
